FAERS Safety Report 6003986-7 (Version None)
Quarter: 2008Q4

REPORT INFORMATION
  Report Type: 
  Country: None (occurrence: None)
  Receive Date: 20081212
  Receipt Date: 20081212
  Transmission Date: 20090506
  Serious: Yes (Other)
  Sender: FDA-Public Use
  Company Number: None

PATIENT
  Age: 29 Year
  Sex: Male
  Weight: 71.6683 kg

DRUGS (1)
  1. VICOPROFEN [Suspect]
     Dosage: 2XS A DAY PO
     Route: 048
     Dates: end: 20030611

REACTIONS (3)
  - BLOOD PRESSURE INCREASED [None]
  - EAR HAEMORRHAGE [None]
  - EPISTAXIS [None]
